FAERS Safety Report 5587570-5 (Version None)
Quarter: 2008Q1

REPORT INFORMATION
  Report Type: 
  Country: None (occurrence: None)
  Receive Date: 20080108
  Receipt Date: 20071231
  Transmission Date: 20080703
  Serious: Yes (Other)
  Sender: FDA-Public Use
  Company Number: CHPA2007US14610

PATIENT
  Age: 27 Year
  Sex: Female

DRUGS (1)
  1. TRIAMINIC SRT [Suspect]
     Dosage: 5.5 DF, ORAL
     Route: 048
     Dates: start: 20071229, end: 20071230

REACTIONS (1)
  - CONVULSION [None]
